FAERS Safety Report 8549337 (Version 2)
Quarter: 2012Q4

REPORT INFORMATION
  Report Type: Report from Study
  Country: DE (occurrence: DE)
  Receive Date: 20120507
  Receipt Date: 20120913
  Transmission Date: 20130627
  Serious: Yes (Death, Hospitalization)
  Sender: FDA-Public Use
  Company Number: DE-ROCHE-726001

PATIENT
  Age: 65 Year
  Sex: Male
  Weight: 84 kg

DRUGS (5)
  1. AVASTIN [Suspect]
     Indication: RECTAL CANCER METASTATIC
     Dosage: 5 TH CYCLE GIVEN.
     Route: 042
     Dates: start: 20090922, end: 20100810
  2. IRINOTECAN HYDROCHLORIDE [Suspect]
     Indication: RECTAL CANCER METASTATIC
     Dosage: 5 TH CYCLE GIVEN.
     Route: 042
     Dates: start: 20090922, end: 20100810
  3. 5-FU [Suspect]
     Indication: RECTAL CANCER METASTATIC
     Dosage: 300 MG/M2 GIVEN AS BOLUS. 5 TH CYCLE.
     Route: 042
     Dates: start: 20090922, end: 20100810
  4. 5-FU [Suspect]
     Dosage: 2 CYCLES 5-FU AT 1000 MG/M2 WITH ADDITIONAL RADIOTHERAPY.
     Route: 042
     Dates: start: 20090427, end: 20090622
  5. FOLINIC ACID [Concomitant]
     Indication: RECTAL CANCER METASTATIC
     Dosage: 5 TH CYCLE
     Route: 042
     Dates: start: 20090922, end: 20100810

REACTIONS (3)
  - Ileal fistula [Fatal]
  - Diarrhoea [Fatal]
  - Disease progression [Fatal]
